FAERS Safety Report 9198147 (Version 2)
Quarter: 2013Q2

REPORT INFORMATION
  Report Type: Report from Study
  Country: DE (occurrence: DE)
  Receive Date: 20130329
  Receipt Date: 20130423
  Transmission Date: 20140414
  Serious: Yes (Disabling)
  Sender: FDA-Public Use
  Company Number: DE-AMGEN-DEUCT2013021249

PATIENT
  Age: 21 Year
  Sex: Female

DRUGS (1)
  1. ETANERCEPT [Suspect]
     Indication: JUVENILE IDIOPATHIC ARTHRITIS
     Dosage: UNK UNK, EVERY 4 WEEKS
     Route: 058
     Dates: start: 20000915

REACTIONS (1)
  - Visual impairment [Unknown]
